FAERS Safety Report 14384388 (Version 1)
Quarter: 2018Q1

REPORT INFORMATION
  Report Type: Spontaneous
  Country: US (occurrence: US)
  Receive Date: 20180115
  Receipt Date: 20180115
  Transmission Date: 20180509
  Serious: No
  Sender: FDA-Public Use
  Company Number: US-NEUROCRINE BIOSCIENCES INC.-2017NBI01499

PATIENT
  Age: 77 Year
  Sex: Female

DRUGS (3)
  1. INGREZZA [Suspect]
     Active Substance: VALBENAZINE
     Dosage: AM
     Route: 048
     Dates: start: 2017, end: 2017
  2. INGREZZA [Suspect]
     Active Substance: VALBENAZINE
     Dosage: PM
     Route: 048
     Dates: start: 2017, end: 20171106
  3. INGREZZA [Suspect]
     Active Substance: VALBENAZINE
     Indication: TARDIVE DYSKINESIA
     Dosage: AM
     Route: 048
     Dates: start: 2017, end: 2017

REACTIONS (3)
  - Tardive dyskinesia [Unknown]
  - Feeling abnormal [Unknown]
  - Insomnia [Recovering/Resolving]

NARRATIVE: CASE EVENT DATE: 2017
